FAERS Safety Report 8533649 (Version 2)
Quarter: 2013Q1

REPORT INFORMATION
  Report Type: Spontaneous
  Country: US (occurrence: US)
  Receive Date: 20120427
  Receipt Date: 20130131
  Transmission Date: 20140127
  Serious: Yes (Other)
  Sender: FDA-Public Use
  Company Number: US-ASTRAZENECA-2012SE26351

PATIENT
  Age: 72 Year
  Sex: Male

DRUGS (6)
  1. BRILINTA [Suspect]
     Route: 048
  2. PLAVIX [Suspect]
     Route: 065
  3. LIPITOR [Suspect]
     Route: 065
  4. PREDNISONE [Suspect]
     Route: 065
  5. BENADRYL [Concomitant]
  6. HYDROXZYINE [Concomitant]

REACTIONS (7)
  - Blood glucose increased [Unknown]
  - Myalgia [Unknown]
  - Muscular weakness [Unknown]
  - Urticaria [Unknown]
  - Face oedema [Unknown]
  - Pharyngeal oedema [Unknown]
  - Rash [Unknown]
